FAERS Safety Report 23419469 (Version 2)
Quarter: 2024Q1

REPORT INFORMATION
  Report Type: Spontaneous
  Country: US (occurrence: None)
  Receive Date: 20240118
  Receipt Date: 20240130
  Transmission Date: 20240410
  Serious: Yes (Death, Hospitalization, Other)
  Sender: FDA-Public Use
  Company Number: US-MDD US Operations-MDD202310-004194

PATIENT
  Age: 78 Year
  Sex: Male
  Weight: 48.53 kg

DRUGS (19)
  1. APOKYN [Suspect]
     Active Substance: APOMORPHINE HYDROCHLORIDE
     Indication: Parkinson^s disease
     Dosage: 1-2 TIMES A DAY
     Route: 058
     Dates: start: 20230715
  2. RIVASTIGMINE [Concomitant]
     Active Substance: RIVASTIGMINE
     Dosage: NOT PROVIDED
  3. SINEMET [Concomitant]
     Active Substance: CARBIDOPA\LEVODOPA
     Dosage: NOT PROVIDED
  4. SINEMET [Concomitant]
     Active Substance: CARBIDOPA\LEVODOPA
     Dosage: EACH DF CONTAINS  25/100MG HALF A TAB 7 TIMES A DAY
  5. EXELON [Concomitant]
     Active Substance: RIVASTIGMINE TARTRATE
     Dosage: 3 MG
  6. EXELON [Concomitant]
     Active Substance: RIVASTIGMINE TARTRATE
     Dosage: 6 MG
  7. AZILECT [Concomitant]
     Active Substance: RASAGILINE MESYLATE
     Dosage: NOT PROVIDED
  8. RYTARY [Concomitant]
     Active Substance: CARBIDOPA\LEVODOPA
     Dosage: EACH DF CONTAINS 61.25/245MG
  9. REMERON [Concomitant]
     Active Substance: MIRTAZAPINE
     Dosage: 30 MG
  10. PREDNISONE [Concomitant]
     Active Substance: PREDNISONE
     Dosage: 5 MG
  11. AVODART [Concomitant]
     Active Substance: DUTASTERIDE
     Dosage: 0.5 MG
  12. Oflomac [Concomitant]
     Dosage: NOT PROVIDED
  13. RASAGILINE [Concomitant]
     Active Substance: RASAGILINE\RASAGILINE MESYLATE
     Dosage: 1 MG
  14. FLOMAX [Concomitant]
     Active Substance: TAMSULOSIN HYDROCHLORIDE
     Dosage: 0.4 MG
  15. LEXAPRO [Concomitant]
     Active Substance: ESCITALOPRAM OXALATE
     Dosage: 15 MG
  16. Sena cot [Concomitant]
     Dosage: 2 TAB ONCE A DAY
  17. Flourinef [Concomitant]
     Dosage: 0.1 MG
  18. ATIVAN [Concomitant]
     Active Substance: LORAZEPAM
     Dosage: 0.5 MG
  19. TRAZODONE [Concomitant]
     Active Substance: TRAZODONE HYDROCHLORIDE
     Indication: Anxiety
     Dosage: 25 MG

REACTIONS (7)
  - Weight decreased [Fatal]
  - Dysphagia [Fatal]
  - Adult failure to thrive [Unknown]
  - Unresponsive to stimuli [Unknown]
  - Blood glucose abnormal [Unknown]
  - Headache [Recovered/Resolved]
  - Nausea [Recovered/Resolved]

NARRATIVE: CASE EVENT DATE: 20231229
